FAERS Safety Report 9988190 (Version 2)
Quarter: 2014Q1

REPORT INFORMATION
  Report Type: Spontaneous
  Country: US (occurrence: US)
  Receive Date: 20140309
  Receipt Date: 20140309
  Transmission Date: 20141002
  Serious: Yes (Death)
  Sender: FDA-Public Use
  Company Number: US-GE HEALTHCARE MEDICAL DIAGNOSTICS-OSCN-PR-0806S-0423

PATIENT
  Sex: Male
  Weight: 58.96 kg

DRUGS (15)
  1. OMNISCAN [Suspect]
     Indication: PRODUCT USED FOR UNKNOWN INDICATION
     Route: 042
  2. GADOLINIUM (UNSPECIFIED) [Suspect]
     Indication: PRODUCT USED FOR UNKNOWN INDICATION
     Route: 042
     Dates: start: 20040116, end: 20040116
  3. GADOLINIUM (UNSPECIFIED) [Suspect]
     Route: 042
     Dates: start: 20040618, end: 20040618
  4. MAGNEVIST [Suspect]
     Indication: PRODUCT USED FOR UNKNOWN INDICATION
     Route: 042
     Dates: start: 20021119, end: 20021119
  5. MAGNEVIST [Suspect]
     Route: 042
     Dates: start: 20031003, end: 20031003
  6. MAGNEVIST [Suspect]
     Route: 042
     Dates: start: 20031004, end: 20031004
  7. MAGNEVIST [Suspect]
     Route: 042
     Dates: start: 20031208, end: 20031208
  8. MAGNEVIST [Suspect]
     Route: 042
     Dates: start: 20040304, end: 20040304
  9. MAGNEVIST [Suspect]
     Route: 042
     Dates: start: 20040519, end: 20040519
  10. MAGNEVIST [Suspect]
     Route: 042
     Dates: start: 20050909, end: 20050909
  11. MAGNEVIST [Suspect]
     Route: 042
     Dates: start: 20050930, end: 20050930
  12. MAGNEVIST [Suspect]
     Route: 042
     Dates: start: 20051222, end: 20051222
  13. OPTIMARK [Suspect]
     Indication: PRODUCT USED FOR UNKNOWN INDICATION
     Route: 042
  14. MULTIHANCE [Suspect]
     Indication: PRODUCT USED FOR UNKNOWN INDICATION
     Route: 042
  15. PROHANCE [Suspect]
     Indication: PRODUCT USED FOR UNKNOWN INDICATION
     Route: 042

REACTIONS (1)
  - Nephrogenic systemic fibrosis [Fatal]
